FAERS Safety Report 7179291-2 (Version None)
Quarter: 2010Q4

REPORT INFORMATION
  Report Type: 
  Country: None (occurrence: None)
  Receive Date: 20101221
  Receipt Date: 20101209
  Transmission Date: 20110411
  Serious: Yes (Other)
  Sender: FDA-Public Use
  Company Number: PHHY2010CA06447

PATIENT
  Sex: Female

DRUGS (2)
  1. SANDOSTATIN LAR [Suspect]
     Indication: ACROMEGALY
     Dosage: 30 MG, TIW
     Route: 030
     Dates: start: 20080606
  2. SANDOSTATIN LAR [Suspect]
     Dosage: 30 MG, EVERY 4 WEEKS
     Route: 030

REACTIONS (2)
  - MYALGIA [None]
  - PITUITARY TUMOUR REMOVAL [None]
